FAERS Safety Report 6911977-4 (Version None)
Quarter: 2010Q3

REPORT INFORMATION
  Report Type: 
  Country: None (occurrence: None)
  Receive Date: 20100806
  Receipt Date: 20071203
  Transmission Date: 20110219
  Serious: Yes (Other)
  Sender: FDA-Public Use
  Company Number: US-PFIZER INC-2007084466

PATIENT
  Sex: Female
  Weight: 55 kg

DRUGS (9)
  1. VFEND [Suspect]
     Indication: ASPERGILLOSIS
     Route: 048
     Dates: start: 20071003, end: 20071005
  2. VFEND [Suspect]
     Indication: PULMONARY MYCOSIS
  3. MYCOBUTIN [Concomitant]
     Indication: ATYPICAL MYCOBACTERIAL INFECTION
  4. ETHAMBUTOL HYDROCHLORIDE [Concomitant]
     Indication: ATYPICAL MYCOBACTERIAL INFECTION
  5. CLARITHROMYCIN [Concomitant]
     Indication: ATYPICAL MYCOBACTERIAL INFECTION
  6. SOTALOL HCL [Concomitant]
  7. COUMADIN [Concomitant]
  8. CHOLESTEROL [Concomitant]
  9. PROTONIX [Concomitant]
     Indication: GASTROOESOPHAGEAL REFLUX DISEASE

REACTIONS (5)
  - CONTUSION [None]
  - FALL [None]
  - HALLUCINATION [None]
  - MEDICATION ERROR [None]
  - OVERDOSE [None]
